FAERS Safety Report 9471301 (Version 4)
Quarter: 2013Q3

REPORT INFORMATION
  Report Type: Spontaneous
  Country: GB (occurrence: GB)
  Receive Date: 20130822
  Receipt Date: 20130927
  Transmission Date: 20140515
  Serious: Yes (Other)
  Sender: FDA-Public Use
  Company Number: GB-TEVA-421416ISR

PATIENT
  Sex: Female

DRUGS (5)
  1. ALENDRONIC ACID [Suspect]
     Indication: PRODUCT USED FOR UNKNOWN INDICATION
  2. ASPIRIN [Concomitant]
  3. AMLODIPINE [Concomitant]
  4. STATINS [Concomitant]
  5. ANTIBIOTICS [Concomitant]
     Dates: start: 201302

REACTIONS (8)
  - Haematochezia [Unknown]
  - Balance disorder [Unknown]
  - Constipation [Unknown]
  - Influenza like illness [Unknown]
  - Thirst [Unknown]
  - Abdominal distension [Unknown]
  - Fatigue [Unknown]
  - Mucous stools [Unknown]
